FAERS Safety Report 21112936 (Version 1)
Quarter: 2022Q3

REPORT INFORMATION
  Report Type: Report from Study
  Country: CN (occurrence: CN)
  Receive Date: 20220721
  Receipt Date: 20220721
  Transmission Date: 20221027
  Serious: Yes (Hospitalization, Other)
  Sender: FDA-Public Use
  Company Number: CN-NOVARTISPH-NVSC2022CN098518

PATIENT
  Age: 71 Year
  Sex: Male
  Weight: 70 kg

DRUGS (17)
  1. DOCETAXEL [Suspect]
     Active Substance: DOCETAXEL
     Indication: Non-small cell lung cancer
     Dosage: 130 MG, Q3W (EVERY 21 DAYS)
     Route: 042
     Dates: start: 20220215, end: 20220215
  2. HEPARIN SODIUM [Concomitant]
     Active Substance: HEPARIN SODIUM
     Indication: Product used for unknown indication
     Dosage: UNK
     Route: 065
     Dates: start: 20220215, end: 20220215
  3. DEXAMETHASONE [Concomitant]
     Active Substance: DEXAMETHASONE
     Indication: Product used for unknown indication
     Dosage: UNK
     Route: 065
     Dates: start: 20220215, end: 20220216
  4. BICYCLOL [Concomitant]
     Active Substance: BICYCLOL
     Indication: Product used for unknown indication
     Dosage: UNK
     Route: 065
     Dates: start: 20210817, end: 20220224
  5. VALSARTAN [Concomitant]
     Active Substance: VALSARTAN
     Indication: Product used for unknown indication
     Dosage: UNK
     Route: 065
     Dates: start: 202103
  6. LEUCOGEN [Concomitant]
     Active Substance: LEUCOGEN
     Indication: Product used for unknown indication
     Dosage: UNK
     Route: 065
     Dates: start: 20210817, end: 20220224
  7. UBENIMEX [Concomitant]
     Active Substance: UBENIMEX
     Indication: Product used for unknown indication
     Dosage: UNK
     Route: 065
     Dates: start: 20210817, end: 20220224
  8. METOPROLOL TARTRATE [Concomitant]
     Active Substance: METOPROLOL TARTRATE
     Indication: Product used for unknown indication
     Dosage: UNK
     Route: 065
     Dates: start: 20220207
  9. OMEPRAZOLE [Concomitant]
     Active Substance: OMEPRAZOLE
     Indication: Product used for unknown indication
     Dosage: UNK
     Route: 065
     Dates: start: 2021
  10. NEXIUM [Concomitant]
     Active Substance: ESOMEPRAZOLE MAGNESIUM
     Indication: Product used for unknown indication
     Dosage: UNK
     Route: 065
     Dates: start: 20220215, end: 20220216
  11. GLUTATHIONE [Concomitant]
     Active Substance: GLUTATHIONE
     Indication: Product used for unknown indication
     Dosage: UNK
     Route: 065
     Dates: start: 20220215, end: 20220215
  12. COMPOUND AMINO ACID (14AA) [Concomitant]
     Indication: Product used for unknown indication
     Dosage: UNK
     Route: 065
     Dates: start: 20220215, end: 20220215
  13. TROPISETRON HYDROCHLORIDE [Concomitant]
     Active Substance: TROPISETRON HYDROCHLORIDE
     Indication: Product used for unknown indication
     Dosage: UNK
     Route: 065
     Dates: start: 20220215, end: 20220215
  14. SODIUM BICARBONATE [Concomitant]
     Active Substance: SODIUM BICARBONATE
     Indication: Product used for unknown indication
     Dosage: UNK
     Route: 065
     Dates: start: 20220215, end: 20220215
  15. PHOSPHOLIPID [Concomitant]
     Active Substance: PHOSPHOLIPID
     Indication: Product used for unknown indication
     Dosage: UNK
     Route: 065
     Dates: start: 20220215, end: 20220215
  16. FOSAPREPITANT [Concomitant]
     Active Substance: FOSAPREPITANT
     Indication: Product used for unknown indication
     Dosage: UNK
     Route: 065
     Dates: start: 20220215, end: 20220215
  17. OMEPRAZOLE SODIUM [Concomitant]
     Active Substance: OMEPRAZOLE SODIUM
     Indication: Product used for unknown indication
     Dosage: UNK
     Route: 065
     Dates: start: 20220215, end: 20220215

REACTIONS (1)
  - White blood cell count decreased [Recovered/Resolved]

NARRATIVE: CASE EVENT DATE: 20220222
